FAERS Safety Report 7219493-X (Version None)
Quarter: 2011Q1

REPORT INFORMATION
  Report Type: 
  Country: None (occurrence: None)
  Receive Date: 20110111
  Receipt Date: 20101231
  Transmission Date: 20110831
  Serious: Yes (Other)
  Sender: FDA-Public Use
  Company Number: BE-SANOFI-AVENTIS-2010SA078658

PATIENT
  Age: 77 Year
  Sex: Male

DRUGS (7)
  1. AMIODARONE HYDROCHLORIDE [Suspect]
     Route: 048
     Dates: start: 20060401, end: 20101230
  2. FLUTICASONE PROPIONATE [Concomitant]
  3. ALDACTONE [Concomitant]
  4. MULTAQ [Suspect]
     Route: 048
     Dates: start: 20101231, end: 20110104
  5. SERETIDE [Concomitant]
  6. LYSOMUCIL [Concomitant]
  7. PIRACETAM [Concomitant]

REACTIONS (3)
  - BLINDNESS [None]
  - ABNORMAL SENSATION IN EYE [None]
  - CONDITION AGGRAVATED [None]
